FAERS Safety Report 8985395 (Version 1)
Quarter: 2012Q4

REPORT INFORMATION
  Report Type: 
  Country: US (occurrence: US)
  Receive Date: 20121226
  Receipt Date: 20121226
  Transmission Date: 20130627
  Serious: Yes (Hospitalization, Other)
  Sender: FDA-Public Use
  Company Number: US-PFIZER INC-2012326513

PATIENT
  Age: 59 Year
  Sex: Male
  Weight: 127 kg

DRUGS (10)
  1. LYRICA [Suspect]
     Indication: NEURALGIA
     Dosage: 75 mg, 4x/day
     Dates: start: 2005
  2. LYRICA [Suspect]
     Indication: SPINAL COLUMN STENOSIS
  3. CARVEDILOL [Concomitant]
     Indication: BLOOD PRESSURE ABNORMAL
     Dosage: 12.5 mg, 2x/day
  4. CYMBALTA [Concomitant]
     Indication: DEPRESSION
     Dosage: 60 mg, daily
  5. CYMBALTA [Concomitant]
     Indication: PAIN
  6. FOCALIN [Concomitant]
     Indication: ATTENTION DEFICIT DISORDER
     Dosage: 10 mg, 4x/day
  7. DOXAZOSIN [Concomitant]
     Indication: HYPERTROPHY
     Dosage: 4 mg, 2x/day
  8. DIOVAN [Concomitant]
     Indication: BLOOD PRESSURE ABNORMAL
     Dosage: 320 mg, daily
  9. POTASSIUM CHLORIDE [Concomitant]
     Indication: ELECTROLYTE IMBALANCE
     Dosage: 20 mEq, daily
  10. LASIX [Concomitant]
     Indication: DIURETIC THERAPY
     Dosage: 40 mg, daily

REACTIONS (1)
  - Hernia [Unknown]
